FAERS Safety Report 8417759 (Version 2)
Quarter: 2013Q2

REPORT INFORMATION
  Report Type: Spontaneous
  Country: US (occurrence: None)
  Receive Date: 20111227
  Receipt Date: 20120426
  Transmission Date: 20140414
  Serious: Yes (Other)
  Sender: FDA-Public Use
  Company Number: PHEH2011US009913

PATIENT
  Age: 57 Year
  Sex: Female

DRUGS (15)
  1. GILENYA [Suspect]
     Indication: MULTIPLE SCLEROSIS
     Route: 048
     Dates: start: 20110831
  2. VENTOLIN /00139501/ (SALBUTAMOL) [Concomitant]
  3. LIORESAL (BACLOFEN) [Concomitant]
  4. VITAMIN D3 (COLECALCIFEROL) [Concomitant]
  5. CARDURA (DOXAZOSIN MESILATE) [Concomitant]
  6. VITAMIN D (ERGOCALCIFEROL) [Concomitant]
  7. PROZAC (FLUOXETINE HYDROCHLORIDE) [Concomitant]
  8. FLONASE (FLUTICASONE PROPIONATE) [Concomitant]
  9. NEURONTIN (GABAPENTIN) [Concomitant]
  10. HERBAL EXTRACTS NOS (NO INGREDIENTS/SUBSTANCES) [Concomitant]
  11. HYDRODIURIL (HYDROCHLOROTHIAZIDE) [Concomitant]
  12. PRINIVIL (LISINOPRIL) [Concomitant]
  13. PRILOSEC (OMEPRAZOLE) [Concomitant]
  14. ZOCOR ^DIECKMANN^ (SIMVASTATIN) [Concomitant]
  15. COD-LIVER OIL (COD-LIVER OIL) [Concomitant]

REACTIONS (2)
  - FATIGUE [None]
  - INFLUENZA LIKE ILLNESS [None]
